FAERS Safety Report 4917277-6 (Version None)
Quarter: 2006Q1

REPORT INFORMATION
  Report Type: 
  Country: None (occurrence: None)
  Receive Date: 20060221
  Receipt Date: 20050202
  Transmission Date: 20060701
  Serious: Yes (Hospitalization, Other)
  Sender: FDA-Public Use
  Company Number: US-MERCK-0502USA00385

PATIENT
  Age: 60 Year
  Sex: Male
  Weight: 82 kg

DRUGS (7)
  1. ELAVIL [Concomitant]
     Route: 065
  2. [THERAPY UNSPECIFIED] [Concomitant]
     Indication: ARTHRALGIA
     Route: 065
  3. VIOXX [Suspect]
     Indication: PAIN
     Route: 048
     Dates: start: 20010101, end: 20010301
  4. VIOXX [Suspect]
     Route: 048
     Dates: start: 20010101, end: 20010301
  5. ZOCOR [Concomitant]
     Route: 065
  6. SENNA [Concomitant]
     Route: 065
  7. FENTANYL [Concomitant]
     Route: 065

REACTIONS (7)
  - CARDIAC DISORDER [None]
  - CHEST PAIN [None]
  - CORONARY ARTERY DISEASE [None]
  - DYSURIA [None]
  - MYOCARDIAL INFARCTION [None]
  - PRESCRIBED OVERDOSE [None]
  - WEIGHT DECREASED [None]
